FAERS Safety Report 7985898-2 (Version None)
Quarter: 2011Q4

REPORT INFORMATION
  Report Type: 
  Country: None (occurrence: None)
  Receive Date: 20111216
  Receipt Date: 20111207
  Transmission Date: 20120403
  Serious: Yes (Hospitalization)
  Sender: FDA-Public Use
  Company Number: US-BAYER-2011-075432

PATIENT
  Age: 17 Year
  Sex: Female
  Weight: 48.526 kg

DRUGS (47)
  1. NSAID'S [Concomitant]
     Indication: ANALGESIC THERAPY
     Dosage: UNK, PRN
  2. HYDROCODONE BITARTRATE AND ACETAMINOPHEN [Concomitant]
     Indication: ANALGESIC THERAPY
     Dosage: UNK
     Dates: start: 20081102
  3. IBUPROFEN (ADVIL) [Concomitant]
     Dosage: UNK
     Dates: start: 20040101
  4. IBUPROFEN [Concomitant]
     Dosage: UNK
     Dates: start: 20040101
  5. KLONOPIN [Concomitant]
     Dosage: UNK
     Dates: start: 20060101, end: 20100101
  6. BUSPAR [Concomitant]
     Dosage: UNK
     Dates: start: 20060101, end: 20100101
  7. NEXIUM [Concomitant]
     Dosage: UNK
     Dates: start: 20080507
  8. YAZ [Suspect]
     Indication: PREMENSTRUAL SYNDROME
  9. PROZAC [Concomitant]
     Indication: ANXIETY
     Dosage: 40 UNK, UNK
     Route: 048
     Dates: start: 20060101, end: 20100101
  10. PROZAC [Concomitant]
     Indication: DEPRESSION
  11. ADDERALL 5 [Concomitant]
     Indication: ATTENTION DEFICIT/HYPERACTIVITY DISORDER
     Dosage: UNK
     Dates: start: 20080101, end: 20100101
  12. DURADRIN [Concomitant]
     Dosage: UNK
     Dates: start: 20040101
  13. ACETAMINOPHEN [Concomitant]
  14. AZITHROMYCIN [Concomitant]
     Dosage: UNK
     Dates: start: 20040101
  15. FLEXERIL [Concomitant]
     Indication: MUSCLE SPASMS
     Dosage: UNK
     Dates: start: 20060101, end: 20110101
  16. PREVACID [Concomitant]
     Indication: GASTROOESOPHAGEAL REFLUX DISEASE
     Dosage: 30 MG, UNK
     Dates: start: 20081021
  17. MIDRIN [Concomitant]
     Dosage: UNK
     Dates: start: 20040101
  18. MILK OF MAGNESIA TAB [Concomitant]
  19. NAPROXEN (ALEVE) [Concomitant]
     Dosage: UNK
     Dates: start: 20040101
  20. SKELAXIN [Concomitant]
     Indication: MUSCLE SPASMS
     Dosage: UNK
     Dates: start: 20060101, end: 20110101
  21. YAZ [Suspect]
  22. CEPHALEXIN [Concomitant]
     Dosage: UNK
     Dates: start: 20040101
  23. IMITREX [Concomitant]
     Dosage: UNK
     Dates: start: 20040101
  24. NAPROSYN [Concomitant]
     Dosage: UNK
     Dates: start: 20040101
  25. XANAX [Concomitant]
     Indication: ANXIETY
     Dosage: UNK
     Dates: start: 20060101, end: 20100101
  26. PROTONIX [Concomitant]
  27. PERCOCET [Concomitant]
  28. CYMBALTA [Concomitant]
     Indication: ANXIETY
     Dosage: UNK
     Dates: start: 20060101, end: 20100101
  29. ZOLOFT [Concomitant]
     Indication: ANXIETY
     Dosage: UNK
     Dates: start: 20060101, end: 20100101
  30. MAXALT [Concomitant]
     Dosage: UNK
     Dates: start: 20040101
  31. XANAX [Concomitant]
     Indication: DEPRESSION
  32. CELEXA [Concomitant]
     Dosage: UNK
     Dates: start: 20060101, end: 20100101
  33. MORPHINE [Concomitant]
  34. VICODIN [Concomitant]
  35. YAZ [Suspect]
     Indication: CONTRACEPTION
     Dosage: UNK UNK, QD
     Route: 048
     Dates: start: 20080101, end: 20100101
  36. YAZ [Suspect]
     Indication: ACNE
  37. CEFTIN [Concomitant]
     Dosage: UNK
     Dates: start: 20040101
  38. NAPROXEN [Concomitant]
     Dosage: UNK
     Dates: start: 20040101
  39. ZOLOFT [Concomitant]
     Indication: DEPRESSION
  40. TRAMADOL HCL [Concomitant]
     Indication: ANALGESIC THERAPY
     Dosage: UNK
     Dates: start: 20080101
  41. STRATTERA [Concomitant]
     Indication: ATTENTION DEFICIT/HYPERACTIVITY DISORDER
     Dosage: UNK
     Dates: start: 20080101, end: 20100101
  42. FROVATRIPTAN [Concomitant]
     Dosage: UNK
     Dates: start: 20040101
  43. NEURONTIN [Concomitant]
     Indication: ANALGESIC THERAPY
     Dosage: 600 MG, PRN
     Route: 048
     Dates: start: 20040101
  44. CYMBALTA [Concomitant]
     Indication: DEPRESSION
  45. VIRAL VACCINES [Concomitant]
     Dosage: UNK
     Dates: start: 20080304
  46. SODIUM CHLORIDE [Concomitant]
  47. ZOFRAN [Concomitant]

REACTIONS (5)
  - CHOLECYSTITIS CHRONIC [None]
  - GALLBLADDER DISORDER [None]
  - PANCREATITIS [None]
  - SPHINCTER OF ODDI DYSFUNCTION [None]
  - PAIN [None]
